FAERS Safety Report 10209197 (Version 5)
Quarter: 2014Q4

REPORT INFORMATION
  Report Type: Report from Study
  Country: AU (occurrence: AU)
  Receive Date: 20140530
  Receipt Date: 20141103
  Transmission Date: 20150528
  Serious: Yes (Hospitalization)
  Sender: FDA-Public Use
  Company Number: AU-B.I. PHARMACEUTICALS,INC./RIDGEFIELD-2014-RD-00065EU

PATIENT
  Age: 61 Year
  Sex: Male
  Weight: 113.5 kg

DRUGS (8)
  1. BI 1356 [Suspect]
     Active Substance: LINAGLIPTIN
     Indication: TYPE 2 DIABETES MELLITUS
     Dosage: 5 MG
     Route: 048
     Dates: start: 20111112, end: 20140225
  2. MICARDIS [Concomitant]
     Active Substance: TELMISARTAN
     Indication: HYPERTENSION
     Dosage: 40 MG
     Route: 048
     Dates: start: 200506
  3. LANTUS [Concomitant]
     Active Substance: INSULIN GLARGINE
     Indication: DIABETES MELLITUS
     Dosage: 56 U
     Route: 058
     Dates: start: 20120416
  4. DIABEX [Concomitant]
     Active Substance: METFORMIN HYDROCHLORIDE
     Indication: DIABETES MELLITUS
     Dosage: 1000 MG
     Route: 048
     Dates: start: 200806
  5. VENTOLIN [Concomitant]
     Active Substance: ALBUTEROL SULFATE
     Indication: WHEEZING
     Dosage: 2 PUF
     Route: 055
     Dates: start: 20130719
  6. LIPITOR [Concomitant]
     Active Substance: ATORVASTATIN CALCIUM
     Indication: DYSLIPIDAEMIA
     Dosage: 40 MG
     Route: 048
     Dates: start: 200506
  7. BI 1356 [Suspect]
     Active Substance: LINAGLIPTIN
     Route: 048
     Dates: start: 20140312
  8. PANADOL [Concomitant]
     Active Substance: ACETAMINOPHEN
     Indication: OSTEOARTHRITIS
     Dosage: 1330 MG
     Route: 048
     Dates: start: 201012

REACTIONS (3)
  - Gastrointestinal stoma complication [Recovered/Resolved]
  - Anastomotic leak [Recovered/Resolved]
  - Rectosigmoid cancer [Recovered/Resolved]

NARRATIVE: CASE EVENT DATE: 20140130
